FAERS Safety Report 4762835-5 (Version None)
Quarter: 2005Q3

REPORT INFORMATION
  Report Type: 
  Country: None (occurrence: None)
  Receive Date: 20050906
  Receipt Date: 20050823
  Transmission Date: 20060218
  Serious: Yes (Death)
  Sender: FDA-Public Use
  Company Number: MK200508-0292-1

PATIENT
  Age: 8 Month
  Sex: Female

DRUGS (1)
  1. MD-GASTROVIEW 120ML BTL [Suspect]
     Indication: ENEMA ADMINISTRATION
     Dosage: 1/2-1 GALLON, ONCE, PR
     Dates: start: 20020521, end: 20020521

REACTIONS (5)
  - ARRHYTHMIA [None]
  - CONVULSION [None]
  - ELECTROLYTE IMBALANCE [None]
  - HYPOVOLAEMIA [None]
  - SKIN DISCOLOURATION [None]
